FAERS Safety Report 8816798 (Version 1)
Quarter: 2012Q4

REPORT INFORMATION
  Report Type: Spontaneous
  Country: DK (occurrence: None)
  Receive Date: 20121001
  Receipt Date: 20121001
  Transmission Date: 20130627
  Serious: Yes (Life-Threatening, Hospitalization)
  Sender: FDA-Public Use
  Company Number: 2012MA011687

PATIENT
  Age: 53 Year
  Sex: Female

DRUGS (1)
  1. PACLITAXEL [Suspect]
     Indication: NON-SMALL CELL LUNG CANCER
     Dates: start: 20120509, end: 20120509

REACTIONS (5)
  - Coma [None]
  - Convulsion [None]
  - Cyanosis [None]
  - Dyspnoea [None]
  - Hypersensitivity [None]
